FAERS Safety Report 16992778 (Version 2)
Quarter: 2020Q2

REPORT INFORMATION
  Report Type: Report from Study
  Country: US (occurrence: US)
  Receive Date: 20191105
  Receipt Date: 20200401
  Transmission Date: 20200713
  Serious: Yes (Disabling, Other)
  Sender: FDA-Public Use
  Company Number: US-ROCHE-2451699

PATIENT
  Age: 57 Year
  Sex: Female
  Weight: 46.76 kg

DRUGS (17)
  1. VACCINIUM MACROCARPON [Concomitant]
     Active Substance: CRANBERRY
  2. BIOTIN [Concomitant]
     Active Substance: BIOTIN
  3. ALENDRONATE [Concomitant]
     Active Substance: ALENDRONATE SODIUM
     Indication: OSTEOPOROSIS
     Route: 048
  4. LOTEMAX [Concomitant]
     Active Substance: LOTEPREDNOL ETABONATE
  5. GABAPENTIN. [Concomitant]
     Active Substance: GABAPENTIN
     Indication: NEUROPATHY PERIPHERAL
     Route: 048
  6. LOTEPREDNOL ETABONATE [Concomitant]
     Active Substance: LOTEPREDNOL ETABONATE
     Indication: UVEITIS
     Dosage: LEFT EYE. STRENGTH IS 1% ; ONGOING: YES
     Route: 047
  7. MYRBETRIQ [Concomitant]
     Active Substance: MIRABEGRON
  8. D MANNOSE [Concomitant]
  9. FOSAMAX [Concomitant]
     Active Substance: ALENDRONATE SODIUM
  10. PREDNISOLONE. [Concomitant]
     Active Substance: PREDNISOLONE
  11. VITAMIN C [Concomitant]
     Active Substance: ASCORBIC ACID
  12. BACLOFEN. [Concomitant]
     Active Substance: BACLOFEN
     Indication: MUSCLE SPASTICITY
     Route: 048
  13. MIRABEGRON [Concomitant]
     Active Substance: MIRABEGRON
     Indication: HYPERTONIC BLADDER
     Route: 048
  14. VITAMIN D [VITAMIN D NOS] [Concomitant]
     Active Substance: VITAMIN D NOS
  15. OCREVUS [Suspect]
     Active Substance: OCRELIZUMAB
     Indication: PRIMARY PROGRESSIVE MULTIPLE SCLEROSIS
     Route: 042
     Dates: start: 20180618, end: 20190611
  16. PREDNISOLONE ACETATE. [Concomitant]
     Active Substance: PREDNISOLONE ACETATE
     Indication: UVEITIS
     Dosage: LEFT EYE. STRENGTH IS 1% ; ONGOING: YES
     Route: 047
  17. RELIZEN [Concomitant]
     Active Substance: DIETARY SUPPLEMENT\HERBALS

REACTIONS (5)
  - Weight increased [Unknown]
  - Nasal congestion [Unknown]
  - Muscular weakness [Unknown]
  - Urinary tract infection [Not Recovered/Not Resolved]
  - Hot flush [Unknown]

NARRATIVE: CASE EVENT DATE: 201906
